FAERS Safety Report 14433134 (Version 1)
Quarter: 2018Q1

REPORT INFORMATION
  Report Type: Spontaneous
  Country: US (occurrence: US)
  Receive Date: 20180124
  Receipt Date: 20180124
  Transmission Date: 20180509
  Serious: No
  Sender: FDA-Public Use
  Company Number: US-BAYER-2018-015218

PATIENT
  Age: 21 Month
  Sex: Male
  Weight: 12.7 kg

DRUGS (1)
  1. MIRALAX [Suspect]
     Active Substance: POLYETHYLENE GLYCOL 3350
     Indication: GASTROINTESTINAL DISORDER
     Dosage: (1 TABLESPOON IN 75% WATER 25% JUICE)
     Route: 048
     Dates: start: 201710

REACTIONS (2)
  - Drug administered to patient of inappropriate age [Unknown]
  - Product use issue [None]

NARRATIVE: CASE EVENT DATE: 201710
